FAERS Safety Report 6998864-0 (Version None)
Quarter: 2010Q3

REPORT INFORMATION
  Report Type: 
  Country: None (occurrence: None)
  Receive Date: 20100920
  Receipt Date: 20100113
  Transmission Date: 20110219
  Serious: Yes (Other)
  Sender: FDA-Public Use
  Company Number: US-ASTRAZENECA-2006UW27854

PATIENT
  Sex: Male
  Weight: 147.4 kg

DRUGS (19)
  1. SEROQUEL [Suspect]
     Indication: EMOTIONAL DISORDER
     Route: 048
  2. SEROQUEL [Suspect]
     Indication: SCHIZOPHRENIA
     Route: 048
  3. SEROQUEL [Suspect]
     Indication: AFFECTIVE DISORDER
     Route: 048
  4. SEROQUEL [Suspect]
     Route: 048
  5. SEROQUEL [Suspect]
     Route: 048
  6. SEROQUEL [Suspect]
     Route: 048
  7. ABILIFY [Concomitant]
  8. ALLOPURINOL [Concomitant]
  9. ASPIRIN [Concomitant]
  10. METFORMIN [Concomitant]
  11. GEMFIBROZIL [Concomitant]
     Dosage: 1200 MG BID
  12. PROPRANOLOL [Concomitant]
     Dosage: 40 MG TID
  13. TOPAMAX [Concomitant]
     Dosage: 200 MG TID
  14. DIVALPROEX SODIUM [Concomitant]
     Dosage: 9000 MG BID
  15. GABAPENTIN [Concomitant]
     Dosage: 1800 MG TID
  16. LISINOPRIL [Concomitant]
  17. NIASPAN [Concomitant]
     Dosage: 2000MG BID
  18. NAPROSYN [Concomitant]
     Dosage: 1000 MG BID
  19. NITROGLYCERIN [Concomitant]
     Dosage: PRN

REACTIONS (2)
  - DIABETES MELLITUS [None]
  - EPILEPSY [None]
